FAERS Safety Report 6387840-7 (Version None)
Quarter: 2009Q4

REPORT INFORMATION
  Report Type: 
  Country: None (occurrence: None)
  Receive Date: 20091005
  Receipt Date: 20090923
  Transmission Date: 20100525
  Serious: Yes (Other)
  Sender: FDA-Public Use
  Company Number: AU-PFIZER INC-2009272243

PATIENT
  Age: 75 Year

DRUGS (7)
  1. HEPARIN SODIUM [Suspect]
     Indication: THROMBOSIS PROPHYLAXIS
     Dosage: 5000 IU, 2X/DAY
     Route: 058
  2. ACETYLSALICYLIC ACID [Concomitant]
     Dosage: 100 MG, 1X/DAY
  3. ATORVASTATIN [Concomitant]
     Dosage: 20 MG, 1X/DAY
  4. RAMIPRIL [Concomitant]
     Dosage: 10 MG, 1X/DAY
  5. CARVEDILOL [Concomitant]
     Dosage: 12.5 MG, 2X/DAY
  6. FUROSEMIDE [Concomitant]
     Dosage: 40 MG, 2X/DAY
  7. NOVOMIX [Concomitant]
     Dosage: 26 IU MANE AND 8 IU NOCTE

REACTIONS (1)
  - HYPERKALAEMIA [None]
